FAERS Safety Report 5271532-1 (Version None)
Quarter: 2007Q1

REPORT INFORMATION
  Report Type: 
  Country: None (occurrence: None)
  Receive Date: 20070316
  Receipt Date: 20070301
  Transmission Date: 20070707
  Serious: Yes (Hospitalization)
  Sender: FDA-Public Use
  Company Number: 2007-155369-NL

PATIENT
  Age: 38 Year
  Sex: Female
  Weight: 104.3 kg

DRUGS (1)
  1. NUVARING [Suspect]
     Indication: MENSTRUAL DISORDER
     Dosage: 84 DAYS IN/7 DAYS OUT
     Dates: end: 20060801

REACTIONS (4)
  - COLLAPSE OF LUNG [None]
  - DEEP VEIN THROMBOSIS [None]
  - MYOCARDIAL INFARCTION [None]
  - PULMONARY EMBOLISM [None]
